FAERS Safety Report 24418918 (Version 2)
Quarter: 2024Q4

REPORT INFORMATION
  Report Type: Spontaneous
  Country: TR (occurrence: TR)
  Receive Date: 20241009
  Receipt Date: 20241018
  Transmission Date: 20250115
  Serious: No
  Sender: ROCHE
  Company Number: TR-BoehringerIngelheim-2023-BI-277034

PATIENT
  Age: 80 Year
  Sex: Male

DRUGS (1)
  1. ALTEPLASE [Suspect]
     Active Substance: ALTEPLASE
     Indication: Product used for unknown indication
     Dosage: A BOLUS OF RECOMBINANT TPA WAS ADMINISTERED (15 MG) IN 1 MINUTE, AND INFUSION WAS STARTED (50 MG OVE
     Route: 040

REACTIONS (1)
  - Tongue haematoma [Recovered/Resolved]
